FAERS Safety Report 18825497 (Version 1)
Quarter: 2021Q1

REPORT INFORMATION
  Report Type: Report from Study
  Country: US (occurrence: US)
  Receive Date: 20210202
  Receipt Date: 20210202
  Transmission Date: 20210419
  Serious: Yes (Hospitalization)
  Sender: FDA-Public Use
  Company Number: US-PFIZER INC-2019-05434

PATIENT
  Age: 78 Year
  Sex: Male
  Weight: 75.2 kg

DRUGS (12)
  1. BINIMETINIB [Suspect]
     Active Substance: BINIMETINIB
     Indication: GASTROINTESTINAL STROMAL TUMOUR
     Dosage: 30 MG/15 MG, 2X/DAY (BID)
     Route: 048
     Dates: start: 20171122, end: 20190409
  2. IMATINIB. [Suspect]
     Active Substance: IMATINIB MESYLATE
     Indication: GASTROINTESTINAL STROMAL TUMOUR
     Dosage: 400 MG, 1X/DAY (QD)
     Route: 048
     Dates: start: 20171107, end: 20190409
  3. JUBLIA [Concomitant]
     Active Substance: EFINACONAZOLE
     Dosage: 10.00 %
     Route: 061
     Dates: start: 20181201
  4. CENTRUM SILVER +50 [Concomitant]
     Active Substance: MINERALS\VITAMINS
     Dosage: UNK, 1X/DAY
     Route: 048
     Dates: start: 20171128
  5. ATIVAN [Concomitant]
     Active Substance: LORAZEPAM
     Dosage: 0.50 MG, 3X/DAY
     Route: 048
     Dates: start: 20171202
  6. SULFADIAZINE. [Concomitant]
     Active Substance: SULFADIAZINE
     Dosage: 1.00 %, 2X/DAY
     Route: 061
     Dates: start: 20180919
  7. IMATINIB. [Suspect]
     Active Substance: IMATINIB MESYLATE
     Dosage: 400 MG, 1X/DAY (QD)
     Route: 048
     Dates: start: 20190423
  8. FERROUS SULFATE. [Concomitant]
     Active Substance: FERROUS SULFATE
     Dosage: 45.00 MG, 1X/DAY
     Route: 048
     Dates: start: 20171108
  9. CLINDAMYCIN. [Concomitant]
     Active Substance: CLINDAMYCIN
     Dosage: 1.00 %, 2X/DAY
     Route: 061
     Dates: start: 20190117
  10. BINIMETINIB [Suspect]
     Active Substance: BINIMETINIB
     Dosage: 15 MG, 2X/DAY (BID)
     Route: 048
     Dates: start: 20190423
  11. LIPITOR [Concomitant]
     Active Substance: ATORVASTATIN CALCIUM
     Dosage: 20.00 MG, 1X/DAY
     Route: 048
     Dates: start: 20171108
  12. IBUPROFEN. [Concomitant]
     Active Substance: IBUPROFEN
     Dosage: 200.00 MG, 4X/DAY
     Route: 048
     Dates: start: 20181016

REACTIONS (2)
  - Hypotension [Recovered/Resolved]
  - Anaemia [Recovered/Resolved]

NARRATIVE: CASE EVENT DATE: 20190411
